FAERS Safety Report 5609693-4 (Version None)
Quarter: 2008Q1

REPORT INFORMATION
  Report Type: 
  Country: None (occurrence: None)
  Receive Date: 20080131
  Receipt Date: 20080129
  Transmission Date: 20080703
  Serious: Yes (Hospitalization)
  Sender: FDA-Public Use
  Company Number: B0504920A

PATIENT
  Age: 37 Year
  Sex: Male
  Weight: 58 kg

DRUGS (2)
  1. LAPATINIB [Suspect]
     Dosage: 1250MG PER DAY
     Route: 048
     Dates: start: 20071228
  2. CAPECITABINE [Suspect]
     Dosage: 2000MGM2 PER DAY
     Route: 048
     Dates: start: 20071228

REACTIONS (5)
  - BACK PAIN [None]
  - DYSPNOEA [None]
  - EYE PAIN [None]
  - PLEURAL EFFUSION [None]
  - PYREXIA [None]
